FAERS Safety Report 12527491 (Version 1)
Quarter: 2016Q3

REPORT INFORMATION
  Report Type: Spontaneous
  Country: AT (occurrence: AT)
  Receive Date: 20160705
  Receipt Date: 20160705
  Transmission Date: 20161109
  Serious: Yes (Other)
  Sender: FDA-Public Use
  Company Number: PHHY2016AT090745

PATIENT

DRUGS (1)
  1. GLIVEC [Suspect]
     Active Substance: IMATINIB MESYLATE
     Indication: CHRONIC MYELOID LEUKAEMIA
     Dosage: 400 MG, UNK
     Route: 065
     Dates: start: 200112, end: 201606

REACTIONS (1)
  - Neuralgic amyotrophy [Unknown]

NARRATIVE: CASE EVENT DATE: 201508
